FAERS Safety Report 6918568-X (Version None)
Quarter: 2010Q3

REPORT INFORMATION
  Report Type: 
  Country: None (occurrence: None)
  Receive Date: 20100811
  Receipt Date: 20100805
  Transmission Date: 20110219
  Serious: No
  Sender: FDA-Public Use
  Company Number: US-TEVA-241749USA

PATIENT
  Sex: Female

DRUGS (4)
  1. COPAXONE [Suspect]
     Indication: MULTIPLE SCLEROSIS
     Route: 058
     Dates: start: 20100201
  2. AMLODIPINE [Concomitant]
  3. METOPROLOL [Concomitant]
  4. DIGOXIN [Concomitant]

REACTIONS (2)
  - GAIT DISTURBANCE [None]
  - THROAT TIGHTNESS [None]
